FAERS Safety Report 5759780-5 (Version None)
Quarter: 2008Q2

REPORT INFORMATION
  Report Type: 
  Country: None (occurrence: None)
  Receive Date: 20080605
  Receipt Date: 20080526
  Transmission Date: 20081010
  Serious: Yes (Death, Hospitalization)
  Sender: FDA-Public Use
  Company Number: B0522610A

PATIENT
  Age: 73 Year
  Sex: Female

DRUGS (13)
  1. ARIXTRA [Suspect]
     Indication: DRUG USE FOR UNKNOWN INDICATION
     Dosage: 2.5MG PER DAY
     Route: 058
     Dates: start: 20080403, end: 20080409
  2. FRAXIPARINE [Concomitant]
     Route: 065
     Dates: start: 20080409
  3. TAREG [Concomitant]
     Dosage: 160MG IN THE MORNING
     Route: 065
  4. LERCAN [Concomitant]
     Dosage: 10MG THREE TIMES PER DAY
     Route: 065
  5. HYPERIUM [Concomitant]
     Dosage: 1MG IN THE MORNING
     Route: 065
  6. PANTOPRAZOLE SODIUM [Concomitant]
     Dosage: 20MG AT NIGHT
     Route: 065
  7. LASILIX [Concomitant]
     Dosage: 40MG TWICE PER DAY
     Route: 065
  8. STILNOX [Concomitant]
     Dosage: 5MG AT NIGHT
     Route: 065
  9. TARDYFERON B9 [Concomitant]
     Route: 065
  10. SMECTA [Concomitant]
     Dosage: 3G THREE TIMES PER DAY
     Route: 065
  11. DOLIPRANE [Concomitant]
     Dosage: 1000MG THREE TIMES PER DAY
     Route: 065
     Dates: start: 20080403, end: 20080407
  12. ACTRAPID [Concomitant]
     Route: 065
     Dates: end: 20080407
  13. CARDENSIEL [Concomitant]
     Dosage: 5MG IN THE MORNING
     Route: 065

REACTIONS (13)
  - ARTHRALGIA [None]
  - BACK PAIN [None]
  - CARDIOPULMONARY FAILURE [None]
  - FAECALOMA [None]
  - HAEMATOMA [None]
  - HAEMOGLOBIN DECREASED [None]
  - HYPERCALCAEMIA [None]
  - ILL-DEFINED DISORDER [None]
  - INTESTINAL INFARCTION [None]
  - MELAENA [None]
  - MUSCULOSKELETAL PAIN [None]
  - PAIN [None]
  - RENAL FAILURE ACUTE [None]
